FAERS Safety Report 8605029 (Version 2)
Quarter: 2013Q3

REPORT INFORMATION
  Report Type: Spontaneous
  Country: US (occurrence: US)
  Receive Date: 20120608
  Receipt Date: 20130702
  Transmission Date: 20140515
  Serious: Yes (Hospitalization, Disabling)
  Sender: FDA-Public Use
  Company Number: US-ASTRAZENECA-2012SE35075

PATIENT
  Sex: Male
  Weight: 87.1 kg

DRUGS (5)
  1. NEXIUM [Suspect]
     Indication: OSTEOARTHRITIS
     Dosage: TWO TIMES A DAY
     Route: 048
     Dates: start: 20090618
  2. ATENOLOL [Concomitant]
  3. HYDROCODENE [Concomitant]
  4. CYORIHEPTADINE [Concomitant]
  5. CHLOR [Concomitant]

REACTIONS (12)
  - Hand fracture [Unknown]
  - Spinal disorder [Unknown]
  - Osteoporosis [Unknown]
  - Multiple fractures [Unknown]
  - Foot fracture [Unknown]
  - Abdominal discomfort [Unknown]
  - Arthritis [Unknown]
  - Bone disorder [Unknown]
  - Pulmonary vascular disorder [Unknown]
  - Glaucoma [Unknown]
  - Abdominal discomfort [Unknown]
  - Abdominal pain upper [Unknown]
